FAERS Safety Report 12603241 (Version 2)
Quarter: 2016Q3

REPORT INFORMATION
  Report Type: Spontaneous
  Country: US (occurrence: US)
  Receive Date: 20160728
  Receipt Date: 20160822
  Transmission Date: 20161109
  Serious: Yes (Death)
  Sender: FDA-Public Use
  Company Number: US-ACTELION-A-US2016-139788

PATIENT
  Age: 73 Year
  Sex: Female

DRUGS (11)
  1. METOLAZONE. [Concomitant]
     Active Substance: METOLAZONE
  2. TORSEMIDE. [Concomitant]
     Active Substance: TORSEMIDE
  3. COUMADIN [Concomitant]
     Active Substance: WARFARIN SODIUM
  4. ADCIRCA [Concomitant]
     Active Substance: TADALAFIL
  5. AMPICILLIN [Concomitant]
     Active Substance: AMPICILLIN
  6. L-ARGININE [Concomitant]
     Active Substance: ARGININE
  7. COQ 10 [Concomitant]
     Active Substance: UBIDECARENONE
  8. OPSUMIT [Suspect]
     Active Substance: MACITENTAN
     Indication: PULMONARY ARTERIAL HYPERTENSION
     Dosage: 10 MG, QD
     Route: 048
     Dates: start: 20150130, end: 20160706
  9. REMODULIN [Concomitant]
     Active Substance: TREPROSTINIL
  10. POTASSIUM [Concomitant]
     Active Substance: POTASSIUM
  11. NIACIN. [Concomitant]
     Active Substance: NIACIN

REACTIONS (2)
  - Pulmonary arterial hypertension [Fatal]
  - Disease progression [Fatal]

NARRATIVE: CASE EVENT DATE: 20160706
